FAERS Safety Report 17161685 (Version 1)
Quarter: 2019Q4

REPORT INFORMATION
  Report Type: Other
  Country: JP (occurrence: JP)
  Receive Date: 20191217
  Receipt Date: 20191217
  Transmission Date: 20200122
  Serious: Yes (Life-Threatening, Hospitalization, Other)
  Sender: FDA-Public Use
  Company Number: JP-ATLAS PHARMACEUTICALS, LLC-2077875

PATIENT
  Age: 73 Year
  Sex: Male

DRUGS (5)
  1. ALOGLIPTIN. [Suspect]
     Active Substance: ALOGLIPTIN
     Route: 048
  2. CANDESARTAN. [Interacting]
     Active Substance: CANDESARTAN
     Route: 048
  3. METFORMIN [Suspect]
     Active Substance: METFORMIN HYDROCHLORIDE
     Indication: PRODUCT USED FOR UNKNOWN INDICATION
     Route: 048
  4. AMLODIPINE [Suspect]
     Active Substance: AMLODIPINE BESYLATE
     Route: 048
  5. GLIMEPIRIDE. [Suspect]
     Active Substance: GLIMEPIRIDE
     Route: 048

REACTIONS (12)
  - Toxicity to various agents [Recovered/Resolved]
  - Hypoglycaemia [Recovering/Resolving]
  - Overdose [Recovered/Resolved]
  - Vomiting [Unknown]
  - Hypotension [Recovering/Resolving]
  - Hypokalaemia [Recovering/Resolving]
  - Heart rate decreased [Recovering/Resolving]
  - Altered state of consciousness [Recovering/Resolving]
  - Blood creatinine increased [Recovered/Resolved]
  - Body temperature decreased [Recovering/Resolving]
  - Lactic acidosis [Recovering/Resolving]
  - Drug interaction [Unknown]
